FAERS Safety Report 16893953 (Version 1)
Quarter: 2019Q4

REPORT INFORMATION
  Report Type: Report from Study
  Country: BR (occurrence: BR)
  Receive Date: 20191008
  Receipt Date: 20191008
  Transmission Date: 20200122
  Serious: Yes (Hospitalization)
  Sender: FDA-Public Use
  Company Number: BR-BIOGEN-2019BI00792382

PATIENT
  Age: 36 Year
  Sex: Female

DRUGS (1)
  1. TECFIDERA [Suspect]
     Active Substance: DIMETHYL FUMARATE
     Indication: MULTIPLE SCLEROSIS
     Route: 048
     Dates: start: 20190808, end: 20190920

REACTIONS (5)
  - Vomiting [Unknown]
  - Diarrhoea [Recovered/Resolved]
  - Ovarian cyst [Not Recovered/Not Resolved]
  - Nausea [Unknown]
  - Bladder disorder [Unknown]

NARRATIVE: CASE EVENT DATE: 20190917
